FAERS Safety Report 8477949-6 (Version None)
Quarter: 2012Q2

REPORT INFORMATION
  Report Type: 
  Country: None (occurrence: None)
  Receive Date: 20120629
  Receipt Date: 20120625
  Transmission Date: 20120825
  Serious: Yes (Death, Congenital Anomaly, Other)
  Sender: FDA-Public Use
  Company Number: US-PFIZER INC-2012153870

PATIENT
  Sex: Male

DRUGS (1)
  1. ZOLOFT [Suspect]
     Dosage: UNK
     Route: 064
     Dates: start: 20050201, end: 20080101

REACTIONS (7)
  - CONGENITAL PULMONARY HYPERTENSION [None]
  - CONGENITAL ANOMALY [None]
  - ATRIAL SEPTAL DEFECT [None]
  - RESPIRATORY FAILURE [None]
  - MATERNAL EXPOSURE TIMING UNSPECIFIED [None]
  - BRONCHOPULMONARY DYSPLASIA [None]
  - PULMONARY VEIN STENOSIS [None]
